FAERS Safety Report 24585383 (Version 2)
Quarter: 2025Q1

REPORT INFORMATION
  Report Type: Report from Study
  Country: BR (occurrence: BR)
  Receive Date: 20241106
  Receipt Date: 20250112
  Transmission Date: 20250409
  Serious: Yes (Other)
  Sender: JOHNSON AND JOHNSON
  Company Number: BR-JNJFOC-20241083520

PATIENT
  Age: 60 Year
  Sex: Female
  Weight: 78 kg

DRUGS (4)
  1. INFLIXIMAB [Suspect]
     Active Substance: INFLIXIMAB
     Indication: Crohn^s disease
     Dosage: HE USED TO HAVE INFUSIONS EVERY 8 WEEKS AND THEN STARTED HAVING INFUSIONS EVERY 6 WEEKS
     Route: 041
     Dates: start: 2022, end: 2024
  2. INFLIXIMAB [Suspect]
     Active Substance: INFLIXIMAB
     Indication: Crohn^s disease
     Route: 041
     Dates: start: 20221007, end: 20240430
  3. DEXAMETHASONE [Concomitant]
     Active Substance: DEXAMETHASONE
  4. DIPYRONE [Concomitant]
     Active Substance: DIPYRONE

REACTIONS (5)
  - Anaphylactic shock [Unknown]
  - Infusion related reaction [Unknown]
  - Crohn^s disease [Unknown]
  - Incorrect drug administration rate [Unknown]
  - Off label use [Unknown]
